FAERS Safety Report 9412450 (Version 1)
Quarter: 2013Q3

REPORT INFORMATION
  Report Type: Spontaneous
  Country: FR (occurrence: FR)
  Receive Date: 20130722
  Receipt Date: 20130722
  Transmission Date: 20140515
  Serious: Yes (Death, Hospitalization)
  Sender: FDA-Public Use
  Company Number: FR-PFIZER INC-FR-WYE-H11991409

PATIENT
  Age: 75 Year
  Sex: Male

DRUGS (7)
  1. CORDARONE [Suspect]
     Indication: ATRIAL FIBRILLATION
     Dosage: LOADING DOSE
     Dates: start: 20071114, end: 20071114
  2. CORDARONE [Suspect]
     Dosage: 200 MG, 1X/DAY
     Route: 048
     Dates: start: 20071114, end: 20071213
  3. ENDOXAN [Suspect]
     Indication: ACQUIRED HAEMOPHILIA
     Dosage: 150 MG DAILY
     Route: 048
     Dates: start: 20071002
  4. AZOPT [Concomitant]
     Route: 065
  5. TILDIEM [Concomitant]
     Route: 048
  6. XALANTAN [Concomitant]
     Route: 065
  7. TADENAN [Concomitant]
     Route: 048

REACTIONS (3)
  - Enterobacter pneumonia [Fatal]
  - Septic shock [Fatal]
  - Interstitial lung disease [Unknown]
